FAERS Safety Report 5598714-3 (Version None)
Quarter: 2008Q1

REPORT INFORMATION
  Report Type: 
  Country: None (occurrence: None)
  Receive Date: 20080122
  Receipt Date: 20080109
  Transmission Date: 20080703
  Serious: No
  Sender: FDA-Public Use
  Company Number: US-ELI_LILLY_AND_COMPANY-US200801002334

PATIENT
  Age: 21 Year
  Sex: Male

DRUGS (5)
  1. ZYPREXA [Suspect]
     Dosage: 40 MG, UNK
     Dates: start: 20070101, end: 20070101
  2. ZYPREXA [Suspect]
     Dosage: 20 MG, UNK
     Dates: start: 20080104
  3. DEPAKOTE [Concomitant]
     Dosage: 2000 MG, UNK
  4. DEPAKOTE [Concomitant]
     Dosage: 1000 MG, UNK
     Dates: start: 20080104
  5. SEROQUEL [Concomitant]
     Dosage: 600 MG, UNK

REACTIONS (2)
  - EPISTAXIS [None]
  - WEIGHT INCREASED [None]
